FAERS Safety Report 7747238-3 (Version None)
Quarter: 2011Q3

REPORT INFORMATION
  Report Type: 
  Country: None (occurrence: None)
  Receive Date: 20110913
  Receipt Date: 20110902
  Transmission Date: 20111222
  Serious: Yes (Other)
  Sender: FDA-Public Use
  Company Number: US-BAYER-2011-081932

PATIENT
  Sex: Female

DRUGS (1)
  1. MIRENA [Suspect]
     Dosage: UNK
     Dates: start: 20110822

REACTIONS (7)
  - MEDICAL DEVICE COMPLICATION [None]
  - DEVICE DISLOCATION [None]
  - VAGINAL ODOUR [None]
  - PRESYNCOPE [None]
  - PAIN [None]
  - SYNCOPE [None]
  - VOMITING [None]
